FAERS Safety Report 5335150-9 (Version None)
Quarter: 2007Q2

REPORT INFORMATION
  Report Type: 
  Country: None (occurrence: None)
  Receive Date: 20070525
  Receipt Date: 20070119
  Transmission Date: 20071010
  Serious: Yes (Hospitalization)
  Sender: FDA-Public Use
  Company Number: GB-MERCK-0612GBR00073

PATIENT
  Age: 54 Year
  Sex: Male

DRUGS (6)
  1. ZOCOR [Suspect]
     Route: 048
  2. ZOCOR [Suspect]
     Route: 048
  3. RAMIPRIL [Suspect]
     Route: 048
  4. RAMIPRIL [Suspect]
     Route: 048
  5. RANITIDINE [Suspect]
     Route: 048
  6. RANITIDINE [Suspect]
     Route: 048

REACTIONS (3)
  - HAEMODYNAMIC INSTABILITY [None]
  - HYPOTENSION [None]
  - OVERDOSE [None]
